FAERS Safety Report 18212253 (Version 1)
Quarter: 2020Q3

REPORT INFORMATION
  Report Type: Spontaneous
  Country: US (occurrence: US)
  Receive Date: 20200828
  Receipt Date: 20200828
  Transmission Date: 20201103
  Serious: Yes (Hospitalization)
  Sender: FDA-Public Use
  Company Number: None

PATIENT
  Age: 49 Year
  Sex: Female

DRUGS (14)
  1. CELECOXIB. [Concomitant]
     Active Substance: CELECOXIB
  2. PLENVU SOL [Concomitant]
  3. CHOLESTYRAM LITE [Concomitant]
  4. ELIQUIS [Concomitant]
     Active Substance: APIXABAN
  5. METHYLPRED [Concomitant]
     Active Substance: METHYLPREDNISOLONE
  6. CYMBALTA [Concomitant]
     Active Substance: DULOXETINE HYDROCHLORIDE
  7. ENBREL [Suspect]
     Active Substance: ETANERCEPT
     Indication: SPONDYLOARTHROPATHY
     Route: 058
     Dates: start: 20200218
  8. DULOXETINE. [Concomitant]
     Active Substance: DULOXETINE
  9. HYDROCO/APAP [Concomitant]
     Active Substance: ACETAMINOPHEN\HYDROCODONE
  10. FOLIC ACID. [Concomitant]
     Active Substance: FOLIC ACID
  11. IBUPROFEN. [Concomitant]
     Active Substance: IBUPROFEN
  12. METHOTREXATE. [Concomitant]
     Active Substance: METHOTREXATE
  13. OMEPRAZOLE. [Concomitant]
     Active Substance: OMEPRAZOLE
  14. SERTRALINE [Concomitant]
     Active Substance: SERTRALINE HYDROCHLORIDE

REACTIONS (1)
  - Thrombosis [None]

NARRATIVE: CASE EVENT DATE: 20200818
